FAERS Safety Report 4384010-9 (Version None)
Quarter: 2004Q2

REPORT INFORMATION
  Report Type: 
  Country: None (occurrence: None)
  Receive Date: 20040621
  Receipt Date: 20040607
  Transmission Date: 20050107
  Serious: Yes (Hospitalization, Other)
  Sender: FDA-Public Use
  Company Number: 2004038136

PATIENT
  Age: 56 Year
  Sex: Male
  Weight: 77.1115 kg

DRUGS (4)
  1. ZOLOFT [Suspect]
     Indication: DEPRESSION
     Dosage: (1 IN 1 D) , ORAL
     Route: 048
  2. AMITRIPTYLINE HCL [Concomitant]
  3. VITAMINS (VITAMINS) [Concomitant]
  4. CANNABIS (CANNABIS) [Concomitant]

REACTIONS (1)
  - HEPATITIS C POSITIVE [None]
